FAERS Safety Report 20956359 (Version 1)
Quarter: 2022Q2

REPORT INFORMATION
  Report Type: Spontaneous
  Country: US (occurrence: None)
  Receive Date: 20220613
  Receipt Date: 20220613
  Transmission Date: 20220720
  Serious: Yes (Other)
  Sender: FDA-Public Use
  Company Number: None

PATIENT
  Age: 79 Year
  Sex: Female
  Weight: 69.75 kg

DRUGS (9)
  1. ARIMIDEX [Suspect]
     Active Substance: ANASTROZOLE
     Indication: Breast cancer
     Dosage: OTHER QUANTITY : 1 TABLET(S);?FREQUENCY : DAILY;?
     Route: 048
     Dates: start: 20220310
  2. SIMVASTATIN [Concomitant]
     Active Substance: SIMVASTATIN
  3. VENLAFAXINE [Concomitant]
     Active Substance: VENLAFAXINE HYDROCHLORIDE
  4. HYDROCHLOROTHIAZIDE [Concomitant]
     Active Substance: HYDROCHLOROTHIAZIDE
  5. GABAPENTIN [Concomitant]
     Active Substance: GABAPENTIN
  6. ARIMIDEX [Concomitant]
     Active Substance: ANASTROZOLE
  7. VITAMINS [Concomitant]
     Active Substance: VITAMINS
  8. LUTEIN [Concomitant]
     Active Substance: LUTEIN
  9. VITAMIN D3 [Concomitant]
     Active Substance: CHOLECALCIFEROL

REACTIONS (3)
  - Stomatitis [None]
  - Dry mouth [None]
  - Oral fungal infection [None]

NARRATIVE: CASE EVENT DATE: 20220509
